FAERS Safety Report 9382926 (Version 1)
Quarter: 2013Q3

REPORT INFORMATION
  Report Type: Spontaneous
  Country: SI (occurrence: SI)
  Receive Date: 20130703
  Receipt Date: 20130703
  Transmission Date: 20140515
  Serious: Yes (Hospitalization)
  Sender: FDA-Public Use
  Company Number: SI-B.I. PHARMACEUTICALS,INC./RIDGEFIELD-2013-AP-00528AP

PATIENT
  Age: 80 Year
  Sex: Female

DRUGS (6)
  1. PRADAXA [Suspect]
     Indication: ATRIAL FIBRILLATION
     Dosage: 220 MG
     Route: 048
     Dates: start: 201304
  2. PRADAXA [Suspect]
     Indication: CEREBROVASCULAR ACCIDENT
  3. CONCOR/BISOPROLOL [Concomitant]
     Indication: HYPERTENSION
     Dosage: 7.5 MG
     Route: 048
  4. PRENESSA/PERINDOPRIL [Concomitant]
     Indication: HYPERTENSION
     Dosage: 8 MG
     Route: 048
  5. LANITOP/METILDIGOXIN [Concomitant]
     Dosage: 0.1 MG
     Route: 048
  6. SORVASTA/ROSUVASTATIN [Concomitant]
     Indication: HYPERLIPIDAEMIA
     Dosage: 40 MG
     Route: 048

REACTIONS (1)
  - Acute myocardial infarction [Recovered/Resolved]
